FAERS Safety Report 11095178 (Version 1)
Quarter: 2015Q2

REPORT INFORMATION
  Report Type: Spontaneous
  Country: US (occurrence: US)
  Receive Date: 20150506
  Receipt Date: 20150506
  Transmission Date: 20150821
  Serious: No
  Sender: FDA-Public Use
  Company Number: US-SA-2014SA103961

PATIENT
  Age: 56 Year
  Sex: Male

DRUGS (1)
  1. APIDRA [Suspect]
     Active Substance: INSULIN GLULISINE
     Indication: TYPE 2 DIABETES MELLITUS
     Dosage: DOSE AND FREQUENCY: 8-10 UNITS WITH MEALS
     Route: 065
     Dates: start: 2012

REACTIONS (3)
  - Product gel formation [Unknown]
  - Drug ineffective [Unknown]
  - Liquid product physical issue [Unknown]
